FAERS Safety Report 11111253 (Version 1)
Quarter: 2015Q2

REPORT INFORMATION
  Report Type: Other
  Country: GB (occurrence: GB)
  Receive Date: 20150513
  Receipt Date: 20150513
  Transmission Date: 20150821
  Serious: Yes (Other)
  Sender: FDA-Public Use
  Company Number: GB-MYLANLABS-2015M1015099

PATIENT

DRUGS (1)
  1. CLOPIDOGREL HYDROBROMIDE [Suspect]
     Active Substance: CLOPIDOGREL HYDROBROMIDE
     Dosage: UNK

REACTIONS (1)
  - Atrial fibrillation [Unknown]
